FAERS Safety Report 7915228-3 (Version None)
Quarter: 2011Q4

REPORT INFORMATION
  Report Type: 
  Country: None (occurrence: None)
  Receive Date: 20111115
  Receipt Date: 20111102
  Transmission Date: 20120403
  Serious: Yes (Hospitalization, Other)
  Sender: FDA-Public Use
  Company Number: US-ELI_LILLY_AND_COMPANY-US201111001341

PATIENT
  Age: 58 Year
  Sex: Female

DRUGS (7)
  1. CYMBALTA [Suspect]
     Dosage: 60 MG, QD
     Dates: start: 20110201, end: 20110601
  2. AMBIEN [Concomitant]
     Dosage: 10 MG, UNK
  3. CYMBALTA [Suspect]
     Indication: FIBROMYALGIA
     Dosage: 30 MG, QD
     Dates: start: 20110101, end: 20110101
  4. PREMARIN [Concomitant]
  5. CYMBALTA [Suspect]
     Dosage: UNK
     Dates: start: 20110601, end: 20110704
  6. LISINOPRIL [Concomitant]
     Dosage: 10 MG, UNK
  7. NORCO [Concomitant]
     Indication: PAIN
     Dosage: 5 MG, UNK

REACTIONS (10)
  - GAIT DISTURBANCE [None]
  - HEMIPARESIS [None]
  - VERTIGO [None]
  - DYSGRAPHIA [None]
  - CEREBROVASCULAR ACCIDENT [None]
  - DYSSTASIA [None]
  - COMMUNICATION DISORDER [None]
  - COORDINATION ABNORMAL [None]
  - SEXUAL DYSFUNCTION [None]
  - SPEECH DISORDER [None]
